FAERS Safety Report 23585325 (Version 1)
Quarter: 2024Q1

REPORT INFORMATION
  Report Type: Spontaneous
  Country: US (occurrence: None)
  Receive Date: 20240229
  Receipt Date: 20240229
  Transmission Date: 20240409
  Serious: Yes (Other)
  Sender: FDA-Public Use
  Company Number: None

PATIENT
  Age: 78 Year
  Sex: Female
  Weight: 92.25 kg

DRUGS (14)
  1. CIMZIA [Suspect]
     Active Substance: CERTOLIZUMAB PEGOL
     Indication: Rheumatoid arthritis
     Dosage: 400 MGM EVERY MONTH SUBCUTANEOUS
     Route: 058
     Dates: start: 20231009, end: 20240105
  2. ARAVA [Suspect]
     Active Substance: LEFLUNOMIDE
     Indication: Rheumatoid arthritis
     Dosage: 1 TABLET DAILY ORAL
     Route: 048
     Dates: start: 20230501
  3. HYDROCHLOROTHIAZIDE [Concomitant]
     Active Substance: HYDROCHLOROTHIAZIDE
  4. MONTELUKAST [Concomitant]
     Active Substance: MONTELUKAST SODIUM
  5. PIOGLITAZONE [Concomitant]
     Active Substance: PIOGLITAZONE
  6. ALPRAZOLAM [Concomitant]
     Active Substance: ALPRAZOLAM
  7. METOPROLOL SUCCINATE [Concomitant]
     Active Substance: METOPROLOL SUCCINATE
  8. DULOXETINE [Concomitant]
     Active Substance: DULOXETINE
  9. SYNTHROID [Concomitant]
     Active Substance: LEVOTHYROXINE SODIUM
  10. ESTRADIOL [Concomitant]
     Active Substance: ESTRADIOL
  11. OZEMPIC [Concomitant]
     Active Substance: SEMAGLUTIDE
  12. VITAMIN D [Concomitant]
     Active Substance: VITAMIN D NOS
  13. FISH OIL [Concomitant]
     Active Substance: FISH OIL
  14. CALCIUM [Concomitant]
     Active Substance: CALCIUM

REACTIONS (4)
  - Paraesthesia [None]
  - Hypoaesthesia [None]
  - Rash pruritic [None]
  - Squamous cell carcinoma of skin [None]

NARRATIVE: CASE EVENT DATE: 20240131
